FAERS Safety Report 8558315-1 (Version None)
Quarter: 2012Q3

REPORT INFORMATION
  Report Type: 
  Country: None (occurrence: None)
  Receive Date: 20120801
  Receipt Date: 20120725
  Transmission Date: 20120928
  Serious: No
  Sender: FDA-Public Use
  Company Number: US-B.I. PHARMACEUTICALS,INC./RIDGEFIELD-2012-BP-16571BP

PATIENT
  Sex: Female

DRUGS (6)
  1. NEBULIZER [Concomitant]
     Indication: LOWER RESPIRATORY TRACT INFECTION
     Dates: start: 20120710
  2. SINGULAIR [Concomitant]
     Indication: ASTHMA
     Dates: start: 20100106
  3. XANAX [Concomitant]
  4. CALTRATE D [Concomitant]
  5. SPIRIVA [Suspect]
     Indication: ASTHMA
     Dosage: 18 MCG
     Route: 055
     Dates: start: 20080101
  6. ATENOLOL [Concomitant]
     Indication: HEART RATE

REACTIONS (2)
  - DYSPNOEA [None]
  - LOWER RESPIRATORY TRACT INFECTION [None]
